FAERS Safety Report 5763602-6 (Version None)
Quarter: 2008Q2

REPORT INFORMATION
  Report Type: 
  Country: None (occurrence: None)
  Receive Date: 20080610
  Receipt Date: 20080604
  Transmission Date: 20081010
  Serious: Yes (Death, Hospitalization)
  Sender: FDA-Public Use
  Company Number: PHHY2008VE09966

PATIENT
  Age: 80 Year
  Sex: Male

DRUGS (2)
  1. EXELON [Suspect]
     Dosage: UNK
     Route: 048
  2. EXELON [Suspect]
     Dosage: UNK
     Route: 048

REACTIONS (3)
  - DEATH [None]
  - FALL [None]
  - FEMUR FRACTURE [None]
